FAERS Safety Report 8847627 (Version 1)
Quarter: 2012Q4

REPORT INFORMATION
  Report Type: 
  Country: CA (occurrence: CA)
  Receive Date: 20121018
  Receipt Date: 20121018
  Transmission Date: 20130627
  Serious: Yes (Other)
  Sender: FDA-Public Use
  Company Number: CA-ELI_LILLY_AND_COMPANY-CA201210002069

PATIENT
  Sex: Female

DRUGS (2)
  1. ZYPREXA [Suspect]
  2. ABILIFY [Concomitant]
     Dosage: 22.5 mg, qd

REACTIONS (2)
  - Condition aggravated [Unknown]
  - Psychotic disorder [Unknown]
